FAERS Safety Report 7326541-5 (Version None)
Quarter: 2011Q1

REPORT INFORMATION
  Report Type: 
  Country: None (occurrence: None)
  Receive Date: 20110302
  Receipt Date: 20110222
  Transmission Date: 20110831
  Serious: Yes (Other)
  Sender: FDA-Public Use
  Company Number: US-GILEAD-2011-0036835

PATIENT
  Age: 62 Year
  Sex: Female
  Weight: 60.836 kg

DRUGS (3)
  1. URSODIOL [Concomitant]
     Indication: BILIARY CIRRHOSIS
  2. REVATIO [Suspect]
     Indication: PULMONARY HYPERTENSION
     Route: 048
  3. LETAIRIS [Suspect]
     Indication: PULMONARY HYPERTENSION
     Route: 048

REACTIONS (3)
  - EPISTAXIS [None]
  - NASAL CONGESTION [None]
  - THROMBOSIS [None]
